FAERS Safety Report 11855687 (Version 1)
Quarter: 2015Q4

REPORT INFORMATION
  Report Type: Spontaneous
  Country: US (occurrence: US)
  Receive Date: 20151221
  Receipt Date: 20151221
  Transmission Date: 20160305
  Serious: Yes (Other)
  Sender: FDA-Public Use
  Company Number: US-SA-2015SA216110

PATIENT
  Age: 63 Year
  Sex: Male

DRUGS (2)
  1. ALIROCUMAB PREFILLED PEN [Concomitant]
     Active Substance: ALIROCUMAB
     Dates: start: 201508
  2. PRALUENT [Suspect]
     Active Substance: ALIROCUMAB
     Indication: HYPERLIPIDAEMIA
     Route: 058
     Dates: start: 201508

REACTIONS (10)
  - Eye operation [Unknown]
  - Haemorrhagic diathesis [Recovering/Resolving]
  - Injection site bruising [Recovering/Resolving]
  - Periorbital cellulitis [Recovering/Resolving]
  - Eye haemorrhage [Recovering/Resolving]
  - Platelet dysfunction [Recovering/Resolving]
  - Contusion [Recovering/Resolving]
  - Blindness [Recovering/Resolving]
  - Eye swelling [Recovering/Resolving]
  - Injection site haemorrhage [Recovering/Resolving]

NARRATIVE: CASE EVENT DATE: 2015
